FAERS Safety Report 11061393 (Version 1)
Quarter: 2015Q2

REPORT INFORMATION
  Report Type: Spontaneous
  Country: US (occurrence: US)
  Receive Date: 20150424
  Receipt Date: 20150424
  Transmission Date: 20150821
  Serious: No
  Sender: FDA-Public Use
  Company Number: US-PFIZER INC-2015136969

PATIENT
  Age: 62 Year
  Sex: Female
  Weight: 54 kg

DRUGS (5)
  1. ESTRING [Suspect]
     Active Substance: ESTRADIOL
     Indication: VULVOVAGINAL DRYNESS
     Dosage: 2 MG, EVERY 3 MONTHS
     Route: 067
     Dates: start: 2014
  2. ESTRING [Suspect]
     Active Substance: ESTRADIOL
     Indication: SEXUAL DYSFUNCTION
  3. ESTRING [Suspect]
     Active Substance: ESTRADIOL
     Indication: URINARY TRACT DISORDER
  4. ESTRING [Suspect]
     Active Substance: ESTRADIOL
     Indication: VULVOVAGINAL PAIN
  5. ESTRING [Suspect]
     Active Substance: ESTRADIOL
     Indication: VAGINAL DISORDER

REACTIONS (1)
  - Hyperhidrosis [Recovered/Resolved]

NARRATIVE: CASE EVENT DATE: 20150411
